FAERS Safety Report 15718018 (Version 12)
Quarter: 2020Q4

REPORT INFORMATION
  Report Type: Spontaneous
  Country: US (occurrence: US)
  Receive Date: 20181213
  Receipt Date: 20201206
  Transmission Date: 20210113
  Serious: No
  Sender: FDA-Public Use
  Company Number: US-SA-2017SA201695

PATIENT

DRUGS (43)
  1. CEREZYME [Suspect]
     Active Substance: IMIGLUCERASE
     Indication: GAUCHER^S DISEASE
     Dosage: 4000 U, QOW
     Route: 041
     Dates: start: 20131209
  2. CEREZYME [Suspect]
     Active Substance: IMIGLUCERASE
     Dosage: 4000 U, QOW
     Route: 041
     Dates: start: 20190715
  3. HEPARIN [Concomitant]
     Active Substance: HEPARIN SODIUM
     Indication: FLUSHING
     Dosage: UNK UNK,UNK
     Route: 042
     Dates: start: 20170906
  4. VITAMIN D3 [Concomitant]
     Active Substance: CHOLECALCIFEROL
     Dosage: 1 DF, QD
     Route: 048
     Dates: start: 20190214
  5. HEPARIN [Concomitant]
     Active Substance: HEPARIN SODIUM
     Dosage: 100 UN/ML FLUSHING
     Route: 042
     Dates: start: 20180717
  6. HEPARIN [Concomitant]
     Active Substance: HEPARIN SODIUM
     Dosage: 100 UNIT/ML
     Route: 042
     Dates: start: 20190715
  7. LIDOCAINE. [Concomitant]
     Active Substance: LIDOCAINE
     Dosage: UNK
     Route: 061
     Dates: start: 20180717
  8. HUMALOG [Concomitant]
     Active Substance: INSULIN LISPRO
     Dosage: 65 DF,UNK
     Route: 065
     Dates: start: 20171102
  9. ZYRTEC [Concomitant]
     Active Substance: CETIRIZINE HYDROCHLORIDE
     Dosage: 1 DF, PRN (QD)
     Route: 048
     Dates: start: 20170329
  10. STERILE WATER [Concomitant]
     Active Substance: WATER
     Dosage: 1 UNK
     Route: 042
     Dates: start: 20190715
  11. AFRIN [OXYMETAZOLINE] [Concomitant]
     Route: 065
  12. CEREZYME [Suspect]
     Active Substance: IMIGLUCERASE
     Dosage: 3200 U, QOW
     Route: 041
  13. ACETAMINOPHEN. [Concomitant]
     Active Substance: ACETAMINOPHEN
     Indication: PREMEDICATION
     Dosage: 480 MG,UNK
     Route: 048
     Dates: start: 20170201
  14. ACETAMINOPHEN. [Concomitant]
     Active Substance: ACETAMINOPHEN
     Dosage: 480 MG
     Route: 048
     Dates: start: 20190715
  15. IBUPROFEN. [Concomitant]
     Active Substance: IBUPROFEN
     Dosage: 200 MG, PRN (4-6 HOURS)
     Route: 048
     Dates: start: 20170329
  16. LEXAPRO [Concomitant]
     Active Substance: ESCITALOPRAM OXALATE
     Dosage: 1 DF,UNK
     Route: 048
     Dates: start: 20161212
  17. FLUBLOK [Concomitant]
     Active Substance: INFLUENZA A VIRUS A/CALIFORNIA/7/2009 (H1N1) RECOMBINANT HEMAGGLUTININ ANTIGEN\INFLUENZA A VIRUS A/VICTORIA/361/2011 (H3N2) RECOMBINANT HEMAGGLUTININ ANTIGEN\INFLUENZA B VIRUS B/WISCONSIN/1/2010 RECOMBINANT HEMAGGLUTININ ANTIGEN
     Dosage: 1 DF, 1X
     Route: 030
     Dates: start: 20181023
  18. LANTUS [Concomitant]
     Active Substance: INSULIN GLARGINE
     Dosage: 25 U, QD
     Route: 058
     Dates: start: 20190214
  19. LANTUS [Concomitant]
     Active Substance: INSULIN GLARGINE
     Dosage: 31UNITS,QD
     Route: 058
     Dates: start: 20190730
  20. CEREZYME [Suspect]
     Active Substance: IMIGLUCERASE
     Indication: LIPIDOSIS
     Dosage: 4000 U, QOW
     Route: 042
     Dates: start: 20131224
  21. ACETAMINOPHEN. [Concomitant]
     Active Substance: ACETAMINOPHEN
     Dosage: 480 MG, PRN
     Route: 048
     Dates: start: 20180717
  22. LIDOCAINE/PRILOCAINE [Concomitant]
     Active Substance: LIDOCAINE\PRILOCAINE
     Indication: PREMEDICATION
     Dosage: UNK UNK,UNK
     Route: 061
     Dates: start: 20170906
  23. ZYRTEC [Concomitant]
     Active Substance: CETIRIZINE HYDROCHLORIDE
     Dosage: 10MG
     Route: 065
     Dates: start: 20180329
  24. TRESIBA [Concomitant]
     Active Substance: INSULIN DEGLUDEC
     Dosage: 20 UNITS DAILY
     Route: 065
     Dates: start: 20181023
  25. DIPHENHYDRAMINE. [Concomitant]
     Active Substance: DIPHENHYDRAMINE
     Dosage: 25 MG, PRN
     Route: 048
     Dates: start: 20190715
  26. NORMAL SALINE [Concomitant]
     Active Substance: SODIUM CHLORIDE
     Dosage: 0.9 %, DILUTE
     Route: 042
     Dates: start: 20190715
  27. EPINEPHRINE. [Concomitant]
     Active Substance: EPINEPHRINE
     Indication: ANAPHYLACTIC REACTION
     Dosage: 0.3 MG, PRN
     Route: 030
     Dates: start: 20170906
  28. TAMIFLU [Concomitant]
     Active Substance: OSELTAMIVIR PHOSPHATE
     Dosage: 1 DF, 1X
     Route: 048
     Dates: start: 20170329
  29. DIPHENHYDRAMINE. [Concomitant]
     Active Substance: DIPHENHYDRAMINE
     Dosage: 25 MG, UNK
     Route: 048
     Dates: start: 20180717
  30. EPINEPHRINE. [Concomitant]
     Active Substance: EPINEPHRINE
     Dosage: .3 MG,UNK
     Route: 030
     Dates: start: 20180717
  31. HUMALOG [Concomitant]
     Active Substance: INSULIN LISPRO
     Dosage: 200 UNITS
     Route: 058
     Dates: start: 20190731
  32. MULTIVITAMINS [VITAMINS NOS] [Concomitant]
     Active Substance: VITAMINS
     Dosage: 1 TAB DAILY
     Route: 048
     Dates: start: 20170823
  33. FLONASE [MOMETASONE FUROATE] [Concomitant]
     Active Substance: MOMETASONE FUROATE
     Dosage: 2 SPAYS (2 MCG/SPRAY),QD
     Route: 055
     Dates: start: 20170515
  34. HUMALOG [Concomitant]
     Active Substance: INSULIN LISPRO
     Dosage: 200 UNITS SLIDING
     Route: 058
     Dates: start: 20180731
  35. PROAIR HFA [Concomitant]
     Active Substance: ALBUTEROL SULFATE
     Dosage: 2 PUFF, TID
     Route: 055
     Dates: start: 20171125
  36. DIPHENHYDRAMINE. [Concomitant]
     Active Substance: DIPHENHYDRAMINE
     Indication: ANAPHYLACTIC REACTION
     Dosage: 25 MG,UNK
     Route: 048
     Dates: start: 20170906
  37. LIDOCAINE/PRILOCAINE [Concomitant]
     Active Substance: LIDOCAINE\PRILOCAINE
     Dosage: 2.5% 1 DOSE, PRIOR TO TREATMENT
     Route: 061
     Dates: start: 20180717
  38. NORMAL SALINE [Concomitant]
     Active Substance: SODIUM CHLORIDE
     Indication: FLUSHING
     Dosage: 0.90%; UNK
     Route: 042
     Dates: start: 20170906
  39. NORMAL SALINE [Concomitant]
     Active Substance: SODIUM CHLORIDE
     Dosage: 0.9 % DILUENT
     Route: 042
     Dates: start: 20180717
  40. EPINEPHRINE. [Concomitant]
     Active Substance: EPINEPHRINE
     Dosage: 0.3 MG, PRN
     Route: 030
     Dates: start: 20190715
  41. LIDOCAINE. [Concomitant]
     Active Substance: LIDOCAINE
     Indication: PREMEDICATION
     Dosage: 4 UNK
     Route: 061
     Dates: start: 20170906
  42. STERILE WATER [Concomitant]
     Active Substance: WATER
     Dosage: 1 VIAL RECONSTITUTION
     Route: 042
     Dates: start: 20180717
  43. VITAMIN D3 [Concomitant]
     Active Substance: CHOLECALCIFEROL
     Dosage: 1 DF
     Route: 048
     Dates: start: 20190214

REACTIONS (22)
  - Cough [Unknown]
  - Nasal congestion [Unknown]
  - Skin discolouration [Unknown]
  - Vomiting [Not Recovered/Not Resolved]
  - Tooth fracture [Unknown]
  - Abdominal pain upper [Unknown]
  - Upper respiratory tract infection [Unknown]
  - Blood glucose increased [Recovered/Resolved]
  - Joint stiffness [Unknown]
  - Oropharyngeal pain [Unknown]
  - Nausea [Not Recovered/Not Resolved]
  - Fatigue [Unknown]
  - Influenza [Unknown]
  - Fall [Unknown]
  - Concussion [Unknown]
  - Arthralgia [Unknown]
  - Ligament sprain [Unknown]
  - Post-traumatic headache [Recovering/Resolving]
  - Throat irritation [Unknown]
  - Skin warm [Unknown]
  - Oropharyngeal pain [Unknown]
  - Headache [Recovered/Resolved]

NARRATIVE: CASE EVENT DATE: 20190102
